FAERS Safety Report 17471824 (Version 1)
Quarter: 2020Q1

REPORT INFORMATION
  Report Type: Spontaneous
  Country: DK (occurrence: DK)
  Receive Date: 20200228
  Receipt Date: 20200228
  Transmission Date: 20200409
  Serious: Yes (Hospitalization, Other)
  Sender: FDA-Public Use
  Company Number: DK-AMGEN-DNKSP2020031132

PATIENT
  Age: 74 Year
  Sex: Female

DRUGS (1)
  1. XGEVA [Suspect]
     Active Substance: DENOSUMAB
     Indication: PLASMA CELL MYELOMA
     Dosage: 120 MILLIGRAM (1 INFUSION EVERY 3 TO 4 WEEKS, STRENGTH: 120 MG)
     Route: 042
     Dates: start: 2018, end: 2019

REACTIONS (3)
  - Oroantral fistula [Unknown]
  - Osteonecrosis of jaw [Recovering/Resolving]
  - Jaw operation [Unknown]

NARRATIVE: CASE EVENT DATE: 20191007
